FAERS Safety Report 4682348-9 (Version None)
Quarter: 2005Q2

REPORT INFORMATION
  Report Type: 
  Country: None (occurrence: None)
  Receive Date: 20050606
  Receipt Date: 20050602
  Transmission Date: 20051028
  Serious: Yes (Other)
  Sender: FDA-Public Use
  Company Number: 200511623JP

PATIENT
  Age: 50 Year
  Sex: Male

DRUGS (1)
  1. ALLEGRA [Suspect]
     Indication: RHINITIS ALLERGIC
     Dates: start: 20030305

REACTIONS (1)
  - ENTEROCOLITIS HAEMORRHAGIC [None]
